FAERS Safety Report 21985060 (Version 2)
Quarter: 2023Q1

REPORT INFORMATION
  Report Type: Report from Study
  Country: US (occurrence: US)
  Receive Date: 20230213
  Receipt Date: 20230228
  Transmission Date: 20230418
  Serious: Yes (Hospitalization, Other)
  Sender: FDA-Public Use
  Company Number: US-SA-SAC20230209001729

PATIENT
  Age: 62 Year
  Sex: Male

DRUGS (1)
  1. BELUMOSUDIL MESYLATE [Suspect]
     Active Substance: BELUMOSUDIL MESYLATE
     Indication: Chronic graft versus host disease
     Dosage: 200 MG, QD
     Route: 048
     Dates: start: 20230104, end: 20230223

REACTIONS (7)
  - Confusional state [Unknown]
  - Hallucination [Unknown]
  - Haemorrhage [Unknown]
  - Pneumonia [Unknown]
  - Contusion [Unknown]
  - Bacterial infection [Unknown]
  - Pyrexia [Unknown]
